FAERS Safety Report 20759109 (Version 1)
Quarter: 2022Q2

REPORT INFORMATION
  Report Type: Spontaneous
  Country: US (occurrence: US)
  Receive Date: 20220427
  Receipt Date: 20220427
  Transmission Date: 20220721
  Serious: No
  Sender: FDA-Public Use
  Company Number: US-BioHaven Pharmaceuticals-2021BHV003148

PATIENT
  Age: 50 Year

DRUGS (1)
  1. NURTEC ODT [Suspect]
     Active Substance: RIMEGEPANT SULFATE
     Indication: Migraine
     Dosage: PATIENT HAD IT FILLED ON 24-NOV-2021. PATIENT WAS UNSURE OF THE EXACT DATE SHE STARTED NURTEC BUT IT
     Route: 065
     Dates: start: 202111

REACTIONS (5)
  - Vomiting [Unknown]
  - Discomfort [Unknown]
  - Incorrect dose administered [Unknown]
  - Dyspepsia [Unknown]
  - Nausea [Unknown]
